FAERS Safety Report 19395988 (Version 1)
Quarter: 2021Q2

REPORT INFORMATION
  Report Type: Spontaneous
  Country: US (occurrence: US)
  Receive Date: 20210609
  Receipt Date: 20210609
  Transmission Date: 20210717
  Serious: No
  Sender: FDA-Public Use
  Company Number: US-TAKEDA-2021TUS035855

PATIENT
  Sex: Female

DRUGS (2)
  1. MIRALAX [Concomitant]
     Active Substance: POLYETHYLENE GLYCOL 3350
     Indication: ABNORMAL FAECES
     Dosage: 5 MILLILITER, QD
     Route: 065
  2. MOTEGRITY [Suspect]
     Active Substance: PRUCALOPRIDE SUCCINATE
     Indication: CONSTIPATION
     Dosage: 2 MILLIGRAM, QD
     Route: 065
     Dates: start: 202001

REACTIONS (3)
  - Discomfort [Unknown]
  - Diarrhoea [Unknown]
  - Pain [Unknown]
